FAERS Safety Report 6542686-1 (Version None)
Quarter: 2010Q1

REPORT INFORMATION
  Report Type: 
  Country: None (occurrence: None)
  Receive Date: 20100119
  Receipt Date: 20100111
  Transmission Date: 20100710
  Serious: Yes (Other)
  Sender: FDA-Public Use
  Company Number: DE-MERCK-1001DEU00026

PATIENT
  Age: 47 Year
  Sex: Male
  Weight: 125 kg

DRUGS (7)
  1. JANUMET [Suspect]
     Indication: DIABETES MELLITUS
     Route: 048
     Dates: start: 20091001, end: 20091201
  2. ALLOPURINOL [Concomitant]
     Route: 065
  3. METOPROLOL [Concomitant]
     Route: 065
  4. MIRTAZAPINE [Concomitant]
     Route: 065
  5. PREGABALIN [Concomitant]
     Route: 065
  6. LORAZEPAM [Concomitant]
     Route: 065
  7. LERCANIDIPINE HYDROCHLORIDE [Concomitant]
     Route: 065
     Dates: start: 20091001

REACTIONS (1)
  - RENAL FAILURE ACUTE [None]
